FAERS Safety Report 21731028 (Version 2)
Quarter: 2022Q4

REPORT INFORMATION
  Report Type: Spontaneous
  Country: US (occurrence: US)
  Receive Date: 20221215
  Receipt Date: 20221227
  Transmission Date: 20230113
  Serious: Yes (Other)
  Sender: FDA-Public Use
  Company Number: US-NOVOPROD-990213

PATIENT
  Age: 81 Year
  Sex: Female

DRUGS (1)
  1. VICTOZA [Suspect]
     Active Substance: LIRAGLUTIDE
     Indication: Type 2 diabetes mellitus
     Dosage: 1.8 MG, QD
     Route: 058

REACTIONS (3)
  - Fall [Recovered/Resolved]
  - Arthralgia [Recovering/Resolving]
  - Stress fracture [Recovered/Resolved]

NARRATIVE: CASE EVENT DATE: 20210101
